FAERS Safety Report 10775001 (Version 1)
Quarter: 2015Q1

REPORT INFORMATION
  Report Type: Spontaneous
  Country: US (occurrence: None)
  Receive Date: 20150206
  Receipt Date: 20150206
  Transmission Date: 20150721
  Serious: Yes (Hospitalization)
  Sender: FDA-Public Use
  Company Number: HYP201404-000024

PATIENT
  Age: 16 Year
  Sex: Female

DRUGS (2)
  1. RAVICTI [Suspect]
     Active Substance: GLYCEROL PHENYLBUTYRATE
     Indication: UREA CYCLE ENZYME DEFICIENCY
     Route: 048
     Dates: start: 201303
  2. CITRULLINE [Concomitant]
     Active Substance: CITRULLINE

REACTIONS (10)
  - Hyperammonaemic crisis [None]
  - Fatigue [None]
  - Skin candida [None]
  - Abdominal distension [None]
  - Mental impairment [None]
  - Mental status changes [None]
  - Abdominal pain lower [None]
  - Vomiting [None]
  - Asthenia [None]
  - Alopecia [None]

NARRATIVE: CASE EVENT DATE: 20130906
